FAERS Safety Report 16106069 (Version 10)
Quarter: 2021Q4

REPORT INFORMATION
  Report Type: Report from Study
  Country: US (occurrence: US)
  Receive Date: 20190322
  Receipt Date: 20211022
  Transmission Date: 20220303
  Serious: No
  Sender: FDA-Public Use
  Company Number: PHEH2019US012400

PATIENT
  Age: 54 Year
  Sex: Female

DRUGS (5)
  1. GILENYA [Suspect]
     Active Substance: FINGOLIMOD HYDROCHLORIDE
     Indication: Multiple sclerosis
     Dosage: 0.5 MG, QD
     Route: 048
     Dates: start: 20181003
  2. GILENYA [Suspect]
     Active Substance: FINGOLIMOD HYDROCHLORIDE
     Indication: Relapsing multiple sclerosis
     Dosage: 0.5 MG, QOD
     Route: 048
     Dates: start: 201903
  3. GILENYA [Suspect]
     Active Substance: FINGOLIMOD HYDROCHLORIDE
     Dosage: 0.5 MG, QD
     Route: 048
  4. GILENYA [Suspect]
     Active Substance: FINGOLIMOD HYDROCHLORIDE
     Dosage: QOD (FOR 2 WEEKS)
     Route: 048
  5. GILENYA [Suspect]
     Active Substance: FINGOLIMOD HYDROCHLORIDE
     Dosage: QD
     Route: 048

REACTIONS (14)
  - Full blood count abnormal [Recovering/Resolving]
  - Somnolence [Unknown]
  - Prescribed underdose [Unknown]
  - Amnesia [Unknown]
  - Mood swings [Unknown]
  - Pain [Unknown]
  - Product use issue [Unknown]
  - Stress [Unknown]
  - Insomnia [Unknown]
  - Product dose omission issue [Unknown]
  - Feeling abnormal [Unknown]
  - Headache [Unknown]
  - White blood cell count decreased [Recovered/Resolved]
  - Migraine [Unknown]

NARRATIVE: CASE EVENT DATE: 20190301
